FAERS Safety Report 13800934 (Version 2)
Quarter: 2017Q3

REPORT INFORMATION
  Report Type: Spontaneous
  Country: DE (occurrence: DE)
  Receive Date: 20170727
  Receipt Date: 20170803
  Transmission Date: 20171127
  Serious: Yes (Other)
  Sender: FDA-Public Use
  Company Number: DE-TEVA-791369GER

PATIENT
  Age: 55 Year
  Sex: Male

DRUGS (3)
  1. PREDNISOLONE. [Suspect]
     Active Substance: PREDNISOLONE
     Indication: MYOSITIS
     Dosage: INITIAL DOSE UNKNOWN; THEN 20MG/DAY; REDUCED TO 15MG/DAY
     Route: 065
  2. PREDNISOLONE. [Suspect]
     Active Substance: PREDNISOLONE
     Dosage: 15 MILLIGRAM DAILY;
     Route: 065
  3. CYCLOPHOSPHAMIDE. [Concomitant]
     Active Substance: CYCLOPHOSPHAMIDE
     Dosage: 1000 MG
     Route: 065

REACTIONS (11)
  - Hypoaesthesia [Not Recovered/Not Resolved]
  - Disturbance in attention [Unknown]
  - Weight increased [Unknown]
  - Erectile dysfunction [Not Recovered/Not Resolved]
  - Ageusia [Unknown]
  - Fall [Unknown]
  - Areflexia [Unknown]
  - Epidural lipomatosis [Recovering/Resolving]
  - Leukoplakia oral [Unknown]
  - Testicular pain [Not Recovered/Not Resolved]
  - Vision blurred [Unknown]
